FAERS Safety Report 17041415 (Version 1)
Quarter: 2019Q4

REPORT INFORMATION
  Report Type: Spontaneous
  Country: FR (occurrence: FR)
  Receive Date: 20191118
  Receipt Date: 20191118
  Transmission Date: 20200122
  Serious: Yes (Life-Threatening, Other)
  Sender: FDA-Public Use
  Company Number: FR-UCBSA-2019047049

PATIENT
  Age: 73 Year
  Sex: Male
  Weight: 70 kg

DRUGS (4)
  1. KEPPRA [Suspect]
     Active Substance: LEVETIRACETAM
     Indication: EPILEPSY
     Dosage: 2 DOSAGE FORM DAILY
     Route: 048
     Dates: start: 20190820, end: 20190918
  2. ZOPICLONE [Suspect]
     Active Substance: ZOPICLONE
     Indication: INSOMNIA
     Dosage: 7.5 MG DAILY
     Route: 048
     Dates: start: 20190911, end: 20190918
  3. OTEZLA [Suspect]
     Active Substance: APREMILAST
     Indication: PSORIASIS
     Dosage: 2 DOSAGE FORM DAILY
     Route: 048
     Dates: start: 20190911, end: 20190918
  4. SERESTA [Suspect]
     Active Substance: OXAZEPAM
     Indication: ANXIETY
     Dosage: 1 DOSAGE FORM DAILY
     Route: 048
     Dates: start: 20190911, end: 20190918

REACTIONS (2)
  - Suicide attempt [Recovered/Resolved]
  - Coma [Recovered/Resolved]

NARRATIVE: CASE EVENT DATE: 20190918
